FAERS Safety Report 19695229 (Version 2)
Quarter: 2021Q3

REPORT INFORMATION
  Report Type: Spontaneous
  Country: JP (occurrence: JP)
  Receive Date: 20210813
  Receipt Date: 20210924
  Transmission Date: 20211014
  Serious: Yes (Other)
  Sender: FDA-Public Use
  Company Number: NVSJ2021JP011898

PATIENT
  Age: 74 Year
  Sex: Male

DRUGS (1)
  1. BEOVU [Suspect]
     Active Substance: BROLUCIZUMAB-DBLL
     Indication: AGE-RELATED MACULAR DEGENERATION
     Dosage: 6 MG
     Route: 031
     Dates: start: 20210622, end: 20210622

REACTIONS (10)
  - Keratic precipitates [Recovering/Resolving]
  - Vitreous floaters [Recovering/Resolving]
  - Vitreous opacities [Recovering/Resolving]
  - Anterior chamber flare [Recovering/Resolving]
  - Eye inflammation [Recovering/Resolving]
  - Visual acuity reduced [Recovered/Resolved]
  - Anterior chamber inflammation [Recovering/Resolving]
  - Retinal perivascular sheathing [Unknown]
  - Retinal vasculitis [Recovered/Resolved]
  - Intraocular pressure increased [Recovered/Resolved]

NARRATIVE: CASE EVENT DATE: 20210702
